FAERS Safety Report 4915828-9 (Version None)
Quarter: 2006Q1

REPORT INFORMATION
  Report Type: 
  Country: None (occurrence: None)
  Receive Date: 20060214
  Receipt Date: 20060202
  Transmission Date: 20060701
  Serious: Yes (Hospitalization)
  Sender: FDA-Public Use
  Company Number: SU-2006-004593

PATIENT
  Age: 68 Year
  Sex: Female
  Weight: 68.0396 kg

DRUGS (5)
  1. BENICAR HCT [Suspect]
     Indication: BLOOD PRESSURE
     Dosage: 40.125 MG QD PO
     Route: 048
     Dates: start: 20050101, end: 20050601
  2. BENICAR [Suspect]
     Indication: BLOOD PRESSURE
     Dosage: 20 MG UNK PO
     Route: 048
     Dates: start: 20050701
  3. TOPROL-XL [Concomitant]
  4. PLAVIX [Concomitant]
  5. LIPITOR [Concomitant]

REACTIONS (5)
  - ARTERIAL STENT INSERTION [None]
  - BLOOD PRESSURE INCREASED [None]
  - DRUG INEFFECTIVE [None]
  - HYPOTENSION [None]
  - STENT PLACEMENT [None]
